FAERS Safety Report 4746390-1 (Version None)
Quarter: 2005Q3

REPORT INFORMATION
  Report Type: 
  Country: None (occurrence: None)
  Receive Date: 20050815
  Receipt Date: 20050805
  Transmission Date: 20060218
  Serious: Yes (Death)
  Sender: FDA-Public Use
  Company Number: 2005112462

PATIENT
  Age: 85 Year
  Sex: Female

DRUGS (11)
  1. SULFASALAZINE [Suspect]
     Indication: RHEUMATOID ARTHRITIS
     Dosage: 1000 MG (500 MG, 2 IN 1 D), ORAL
     Route: 048
     Dates: start: 20050714, end: 20050723
  2. ALLOPURINOL [Concomitant]
  3. MIRTAZAPINE [Concomitant]
  4. ASPIRIN [Concomitant]
  5. LISINIOPRIL (LISINOPRIL) [Concomitant]
  6. TRAMADOL HCL [Concomitant]
  7. ALBUTEROL SULFATE HFA [Concomitant]
  8. LEVOTHYROXINE SODIUM [Concomitant]
  9. FUROSEMIDE [Concomitant]
  10. LANSOPRAZOLE [Concomitant]
  11. MELOXICAM [Concomitant]

REACTIONS (3)
  - PNEUMONIA [None]
  - RASH [None]
  - WHEEZING [None]
